FAERS Safety Report 16793275 (Version 4)
Quarter: 2020Q3

REPORT INFORMATION
  Report Type: Report from Study
  Country: GB (occurrence: GB)
  Receive Date: 20190911
  Receipt Date: 20191225
  Transmission Date: 20201105
  Serious: Yes (Life-Threatening, Other)
  Sender: FDA-Public Use
  Company Number: GB-ROCHE-2397830

PATIENT
  Age: 55 Year
  Sex: Male
  Weight: 68 kg

DRUGS (27)
  1. POLATUZUMAB VEDOTIN. [Suspect]
     Active Substance: POLATUZUMAB VEDOTIN
     Route: 042
     Dates: start: 20190904, end: 20190904
  2. HYDROCORTISONE. [Concomitant]
     Active Substance: HYDROCORTISONE
     Indication: PREMEDICATION
     Route: 042
  3. CHLORPHENAMINE [Concomitant]
     Active Substance: CHLORPHENIRAMINE MALEATE
     Route: 042
     Dates: start: 20190729
  4. AMITRIPTYLINE [Concomitant]
     Active Substance: AMITRIPTYLINE
     Route: 048
  5. COTRIMOXAZOLE [Concomitant]
     Active Substance: SULFAMETHOXAZOLE\TRIMETHOPRIM
     Dosage: 3 TIMES WEEKLY, 2 TIMES PER DAY
     Route: 048
  6. RITUXIMAB. [Suspect]
     Active Substance: RITUXIMAB
     Indication: DIFFUSE LARGE B-CELL LYMPHOMA
     Route: 042
     Dates: start: 20190814, end: 20190814
  7. ENOXAPARIN [Concomitant]
     Active Substance: ENOXAPARIN
     Route: 058
  8. FILGRASTIM [Concomitant]
     Active Substance: FILGRASTIM
     Route: 065
     Dates: start: 20190822
  9. ONDANSETRON [Concomitant]
     Active Substance: ONDANSETRON
     Dosage: ORAL OR INTRAVENOUS
     Route: 065
     Dates: start: 20190730
  10. PARACETAMOL [Concomitant]
     Active Substance: ACETAMINOPHEN
     Dosage: ORAL OR INTRAVENOUS
     Route: 065
     Dates: start: 20190813
  11. BENDAMUSTINE [Suspect]
     Active Substance: BENDAMUSTINE
     Indication: DIFFUSE LARGE B-CELL LYMPHOMA
     Route: 042
     Dates: start: 20190815, end: 20190815
  12. BENDAMUSTINE [Suspect]
     Active Substance: BENDAMUSTINE
     Route: 042
     Dates: start: 20190927, end: 20190927
  13. MACROGOL [Concomitant]
     Active Substance: POLYETHYLENE GLYCOLS
     Dosage: 1 SACHET
     Route: 048
  14. RANITIDINE. [Concomitant]
     Active Substance: RANITIDINE
     Route: 048
     Dates: start: 20190814
  15. RITUXIMAB. [Suspect]
     Active Substance: RITUXIMAB
     Route: 042
     Dates: start: 20190926, end: 20190926
  16. MORPHINE [Concomitant]
     Active Substance: MORPHINE
     Route: 048
     Dates: start: 20190820
  17. BENDAMUSTINE [Suspect]
     Active Substance: BENDAMUSTINE
     Route: 042
     Dates: start: 20190904, end: 20190905
  18. POLATUZUMAB VEDOTIN. [Suspect]
     Active Substance: POLATUZUMAB VEDOTIN
     Indication: DIFFUSE LARGE B-CELL LYMPHOMA
     Route: 042
     Dates: start: 20190815, end: 20190815
  19. ORAMORPH SR SUSTAINED RELEASE [Concomitant]
     Active Substance: MORPHINE SULFATE
     Dosage: 10?15 MG
     Route: 048
  20. SENNA [Concomitant]
     Active Substance: SENNA LEAF\SENNOSIDES\SENNOSIDES A AND B
     Route: 048
     Dates: start: 20190721
  21. ASPIRIN [ACETYLSALICYLIC ACID] [Concomitant]
     Active Substance: ASPIRIN
     Route: 048
  22. RITUXIMAB. [Suspect]
     Active Substance: RITUXIMAB
     Route: 042
     Dates: start: 20190904, end: 20190904
  23. ALLOPURINOL. [Concomitant]
     Active Substance: ALLOPURINOL
     Indication: NEOPLASM PROPHYLAXIS
     Route: 048
  24. BISOPROLOL [Concomitant]
     Active Substance: BISOPROLOL
     Route: 048
  25. POLATUZUMAB VEDOTIN. [Suspect]
     Active Substance: POLATUZUMAB VEDOTIN
     Route: 042
     Dates: start: 20190926, end: 20190926
  26. ACICLOVIR [Concomitant]
     Active Substance: ACYCLOVIR
     Indication: PROPHYLAXIS
     Route: 048
  27. CHLORPHENAMINE [Concomitant]
     Active Substance: CHLORPHENIRAMINE MALEATE
     Route: 048
     Dates: start: 20190729

REACTIONS (13)
  - Chills [Unknown]
  - Pyrexia [Recovering/Resolving]
  - Proteus infection [Unknown]
  - Wound [Unknown]
  - Bacteraemia [Recovering/Resolving]
  - Pyrexia [Unknown]
  - Blood lactic acid increased [Unknown]
  - C-reactive protein increased [Unknown]
  - Septic shock [Unknown]
  - Tachycardia [Recovering/Resolving]
  - Malaise [Unknown]
  - Hypotension [Unknown]
  - Acute kidney injury [Not Recovered/Not Resolved]

NARRATIVE: CASE EVENT DATE: 20190817
